FAERS Safety Report 9569640 (Version 2)
Quarter: 2013Q3

REPORT INFORMATION
  Report Type: Spontaneous
  Country: US (occurrence: US)
  Receive Date: 20130930
  Receipt Date: 20130930
  Transmission Date: 20140515
  Serious: No
  Sender: FDA-Public Use
  Company Number: US-AMGEN-USASP2013056565

PATIENT
  Age: 59 Year
  Sex: Female
  Weight: 53.97 kg

DRUGS (6)
  1. ENBREL [Suspect]
     Indication: PRODUCT USED FOR UNKNOWN INDICATION
     Dosage: 50 MG, QWK
     Route: 065
     Dates: start: 201305
  2. SULFASALASIN [Concomitant]
     Dosage: 500 MG, UNK
  3. VITAMIN D                          /00107901/ [Concomitant]
     Dosage: 1000 UNIT, UNK
  4. GLUCOSAMINE + CHONDROITIN WITH MSM /05199601/ [Concomitant]
     Dosage: UNK
  5. CALCIUM +D                         /00944201/ [Concomitant]
     Dosage: UNK
  6. FOLIC ACID [Concomitant]
     Dosage: UNK

REACTIONS (2)
  - Local swelling [Unknown]
  - Conjunctivitis [Recovered/Resolved]
